FAERS Safety Report 11254077 (Version 1)
Quarter: 2015Q3

REPORT INFORMATION
  Report Type: Report from Study
  Country: US (occurrence: US)
  Receive Date: 20150709
  Receipt Date: 20150709
  Transmission Date: 20151125
  Serious: Yes (Death)
  Sender: FDA-Public Use
  Company Number: US-ASTELLAS-2015US023966

PATIENT
  Sex: Male

DRUGS (3)
  1. ERLOTINIB [Suspect]
     Active Substance: ERLOTINIB
     Indication: NEOPLASM MALIGNANT
     Route: 048
     Dates: start: 200506
  2. ERLOTINIB [Suspect]
     Active Substance: ERLOTINIB
     Indication: TONGUE NEOPLASM MALIGNANT STAGE UNSPECIFIED
  3. ERLOTINIB [Suspect]
     Active Substance: ERLOTINIB
     Indication: SOFT TISSUE SARCOMA

REACTIONS (2)
  - Off label use [Unknown]
  - Death [Fatal]
